FAERS Safety Report 11147392 (Version 2)
Quarter: 2015Q3

REPORT INFORMATION
  Report Type: Spontaneous
  Country: AU (occurrence: AU)
  Receive Date: 20150528
  Receipt Date: 20150709
  Transmission Date: 20151125
  Serious: Yes (Life-Threatening, Hospitalization, Other)
  Sender: FDA-Public Use
  Company Number: AU-ROCHE-1584218

PATIENT
  Age: 42 Year
  Sex: Female
  Weight: 71.9 kg

DRUGS (1)
  1. XOLAIR [Suspect]
     Active Substance: OMALIZUMAB
     Indication: ASTHMA
     Route: 058
     Dates: start: 20150316, end: 20150424

REACTIONS (10)
  - Periorbital oedema [Unknown]
  - Choking [Unknown]
  - Chest discomfort [Unknown]
  - Upper airway obstruction [Unknown]
  - Eye inflammation [Unknown]
  - Pharyngeal oedema [Unknown]
  - Eye swelling [Unknown]
  - Dyspnoea [Unknown]
  - Eye oedema [Unknown]
  - Eyelid oedema [Unknown]

NARRATIVE: CASE EVENT DATE: 20150422
